FAERS Safety Report 13960456 (Version 1)
Quarter: 2017Q3

REPORT INFORMATION
  Report Type: Spontaneous
  Country: US (occurrence: US)
  Receive Date: 20170912
  Receipt Date: 20170912
  Transmission Date: 20171128
  Serious: No
  Sender: FDA-Public Use
  Company Number: US-ALLERGAN-1731048US

PATIENT
  Age: 47 Year
  Sex: Female

DRUGS (1)
  1. LEXAPRO [Suspect]
     Active Substance: ESCITALOPRAM OXALATE
     Indication: GENERALISED ANXIETY DISORDER
     Dosage: 10 MG, UNK
     Route: 048

REACTIONS (5)
  - Yawning [Unknown]
  - Sneezing [Unknown]
  - Incorrect dose administered [Unknown]
  - Retching [Unknown]
  - Anxiety [Recovered/Resolved]
